FAERS Safety Report 13862053 (Version 1)
Quarter: 2017Q3

REPORT INFORMATION
  Report Type: Spontaneous
  Country: US (occurrence: US)
  Receive Date: 20170812
  Receipt Date: 20170812
  Transmission Date: 20171127
  Serious: No
  Sender: FDA-Public Use
  Company Number: US-009507513-1708USA003753

PATIENT
  Age: 46 Year
  Sex: Female

DRUGS (2)
  1. FOLLISTIM AQ [Suspect]
     Active Substance: FOLLITROPIN
     Indication: INFERTILITY
     Dosage: 100 UNIT, DAILY (STRENGTH: 300 UNIT CARTRIDGE)
     Route: 058
     Dates: start: 20161111, end: 20161118
  2. FOLLISTIM AQ [Suspect]
     Active Substance: FOLLITROPIN
     Dosage: 200 UNIT, DAILY (STRENGTH: 300 UNIT CARTRIDGE)
     Route: 058
     Dates: start: 20161222, end: 20170117

REACTIONS (2)
  - Leiomyoma [Unknown]
  - Uterine leiomyoma [Unknown]

NARRATIVE: CASE EVENT DATE: 201707
